FAERS Safety Report 8815405 (Version 1)
Quarter: 2012Q4

REPORT INFORMATION
  Report Type: 
  Country: FR (occurrence: FR)
  Receive Date: 20120928
  Receipt Date: 20120928
  Transmission Date: 20130627
  Serious: Yes (Hospitalization)
  Sender: FDA-Public Use
  Company Number: FR-ASTRAZENECA-2012SE73279

PATIENT
  Age: 30506 Day
  Sex: Female

DRUGS (12)
  1. INEXIUM [Suspect]
     Indication: GASTROOESOPHAGEAL REFLUX DISEASE
     Route: 048
     Dates: end: 20120622
  2. COZAAR [Concomitant]
  3. CORDARONE [Concomitant]
  4. TRANSIPEG [Concomitant]
  5. MELAXOSE [Concomitant]
  6. LEVOTHYROX [Concomitant]
  7. PREVISCAN [Concomitant]
  8. MOTILIUM [Concomitant]
  9. ZALDIAR [Concomitant]
  10. SPIRIVA [Concomitant]
  11. SYMBICORT TURBUHALER [Concomitant]
  12. AIROMIR [Concomitant]

REACTIONS (4)
  - Fall [Recovered/Resolved]
  - Hyponatraemia [Recovered/Resolved]
  - Hyperthermia [Unknown]
  - Cough [Unknown]
